FAERS Safety Report 7731111-0 (Version None)
Quarter: 2011Q3

REPORT INFORMATION
  Report Type: 
  Country: None (occurrence: None)
  Receive Date: 20110906
  Receipt Date: 20110906
  Transmission Date: 20111222
  Serious: Yes (Disabling, Other)
  Sender: FDA-Public Use
  Company Number: None

PATIENT
  Age: 45 Year
  Sex: Female
  Weight: 72.574 kg

DRUGS (2)
  1. TOPIRAMATE [Concomitant]
     Indication: MIGRAINE PROPHYLAXIS
     Dosage: 25 MG
     Dates: start: 20110808, end: 20110907
  2. SUMATRIPTAN SUCCINATE [Suspect]
     Indication: MIGRAINE
     Dosage: 100 MG
     Dates: start: 20110827, end: 20110907

REACTIONS (13)
  - NAUSEA [None]
  - PALPITATIONS [None]
  - SEROTONIN SYNDROME [None]
  - IMPAIRED WORK ABILITY [None]
  - MIGRAINE [None]
  - DRUG INTERACTION [None]
  - ANXIETY [None]
  - AGITATION [None]
  - NERVOUSNESS [None]
  - DIARRHOEA [None]
  - MENTAL STATUS CHANGES [None]
  - COLD SWEAT [None]
  - DECREASED APPETITE [None]
